FAERS Safety Report 7412073-2 (Version None)
Quarter: 2011Q2

REPORT INFORMATION
  Report Type: 
  Country: None (occurrence: None)
  Receive Date: 20110413
  Receipt Date: 20091203
  Transmission Date: 20111010
  Serious: Yes (Hospitalization, Other)
  Sender: FDA-Public Use
  Company Number: US-BAYER-200941685NA

PATIENT
  Age: 76 Year
  Sex: Male
  Weight: 105.22 kg

DRUGS (26)
  1. LISINOPRIL [Concomitant]
     Dosage: 20 MG DAILY LONG TERM USE
     Route: 048
     Dates: end: 20070622
  2. ZOCOR [Concomitant]
     Dosage: 40 MG DAILY
     Route: 048
  3. GLUCOSAMINE [Concomitant]
     Dosage: 1500 MG, BID
     Route: 048
  4. PREDNISONE [Concomitant]
     Route: 048
  5. MOTRIN [Concomitant]
     Dosage: LONG TERM USE, PRN
     Route: 048
  6. PRENYLAMINE [Concomitant]
     Dosage: UNK
     Route: 042
     Dates: start: 20070620, end: 20070620
  7. TORADOL [Concomitant]
     Dosage: UNK
     Dates: end: 20070622
  8. OMNIPAQUE 140 [Concomitant]
     Dosage: 94 ML, UNK
     Dates: start: 20070712
  9. ATIVAN [Concomitant]
     Dosage: UNK
     Route: 042
     Dates: start: 20070620, end: 20070620
  10. PROTAMINE SULFATE [Concomitant]
     Dosage: 250 MG
     Route: 042
     Dates: start: 20070620, end: 20070620
  11. ATENOLOL [Concomitant]
     Dosage: 50 MG DAILY
     Route: 048
     Dates: end: 20070621
  12. ACETYLSALICYLIC ACID SRT [Concomitant]
     Dosage: 81 MG DAILY
     Route: 048
  13. EPINEPHRINE [Concomitant]
     Dosage: UNK
     Route: 042
     Dates: start: 20070620
  14. NAPROSYN [Concomitant]
     Dosage: LONG TERM USES
     Route: 048
  15. VERSED [Concomitant]
     Dosage: UNK
     Route: 042
     Dates: start: 20070620, end: 20070620
  16. HEPARIN [Concomitant]
     Dosage: UNK
     Route: 042
     Dates: start: 20070620, end: 20070620
  17. TRASYLOL [Suspect]
     Dosage: 50 ML/ HOUR DRIP
     Route: 041
     Dates: start: 20070620, end: 20070620
  18. INSULIN [Concomitant]
     Dosage: UNK
     Route: 042
     Dates: start: 20070620
  19. IBUPROFEN [Concomitant]
     Dosage: LONG TERM USES, PRN
     Route: 048
  20. LEVOTHROID [Concomitant]
     Dosage: 75 MICROGRAMS DAILY
     Route: 048
  21. TRASYLOL [Suspect]
     Indication: CORONARY ARTERY BYPASS
     Dosage: 200 MG, UNK
     Route: 042
     Dates: start: 20070620, end: 20070620
  22. TRASYLOL [Suspect]
     Dosage: 200 ML, UNK
     Route: 042
     Dates: start: 20070620, end: 20070620
  23. ANCEF [Concomitant]
     Dosage: 1 GRAM
     Route: 042
     Dates: start: 20070620, end: 20070620
  24. LASIX [Concomitant]
     Dosage: UNK
     Route: 048
     Dates: end: 20070621
  25. ALEVE LIQUID GEL CAPS [Concomitant]
     Dosage: LONG TERM USE
  26. PAVULON [Concomitant]
     Dosage: UNK
     Route: 042
     Dates: start: 20070620, end: 20070620

REACTIONS (10)
  - FEAR [None]
  - ANXIETY [None]
  - UNEVALUABLE EVENT [None]
  - RENAL FAILURE [None]
  - RENAL INJURY [None]
  - PAIN [None]
  - RENAL IMPAIRMENT [None]
  - INJURY [None]
  - EMOTIONAL DISTRESS [None]
  - STRESS [None]
